FAERS Safety Report 9886881 (Version 2)
Quarter: 2014Q1

REPORT INFORMATION
  Report Type: Spontaneous
  Country: KR (occurrence: KR)
  Receive Date: 20140210
  Receipt Date: 20140219
  Transmission Date: 20141002
  Serious: Yes (Other)
  Sender: FDA-Public Use
  Company Number: KR-009507513-1402KOR002985

PATIENT
  Sex: Female

DRUGS (2)
  1. FOSAMAX TABLET (ALENDRONATE SODIUM) [Suspect]
     Dosage: UNK
     Route: 048
  2. FOSAMAX TABLET (ALENDRONATE SODIUM) [Suspect]
     Dosage: UNK
     Route: 048
     Dates: start: 2010

REACTIONS (4)
  - Cancer surgery [Unknown]
  - Neoplasm malignant [Unknown]
  - Oesophagitis [Unknown]
  - Oesophagitis [Not Recovered/Not Resolved]
